FAERS Safety Report 18325462 (Version 1)
Quarter: 2020Q3

REPORT INFORMATION
  Report Type: Spontaneous
  Country: GB (occurrence: GB)
  Receive Date: 20200929
  Receipt Date: 20200929
  Transmission Date: 20201103
  Serious: Yes (Disabling, Other)
  Sender: FDA-Public Use
  Company Number: GB-PFIZER INC-2020371997

PATIENT
  Age: 72 Year
  Sex: Female
  Weight: 37 kg

DRUGS (2)
  1. MOVICOL [Concomitant]
     Active Substance: POLYETHYLENE GLYCOL 3350\POTASSIUM CHLORIDE\SODIUM BICARBONATE\SODIUM CHLORIDE
     Dosage: UNK
  2. LYRICA [Suspect]
     Active Substance: PREGABALIN
     Indication: FIBROMYALGIA
     Dosage: 25 MG
     Route: 048
     Dates: start: 20200824, end: 20200905

REACTIONS (9)
  - Asthenia [Unknown]
  - Sinus headache [Unknown]
  - Nasal congestion [Unknown]
  - Oral mucosal roughening [Not Recovered/Not Resolved]
  - Myalgia [Unknown]
  - Dry mouth [Not Recovered/Not Resolved]
  - Tongue rough [Not Recovered/Not Resolved]
  - Lacrimation increased [Unknown]
  - Influenza like illness [Unknown]

NARRATIVE: CASE EVENT DATE: 20200829
